FAERS Safety Report 9575584 (Version 1)
Quarter: 2013Q4

REPORT INFORMATION
  Report Type: Spontaneous
  Country: US (occurrence: US)
  Receive Date: 20131001
  Receipt Date: 20131001
  Transmission Date: 20140711
  Serious: No
  Sender: FDA-Public Use
  Company Number: US-AMGEN-USASP2012083703

PATIENT
  Age: 68 Year
  Sex: Male
  Weight: 86.17 kg

DRUGS (9)
  1. ENBREL [Suspect]
     Indication: RHEUMATOID ARTHRITIS
     Dosage: 50 MG, QWK
     Route: 058
  2. IBUPROFEN [Concomitant]
     Dosage: 200 MG, UNK
     Route: 048
  3. TYLENOL                            /00020001/ [Concomitant]
     Dosage: 325 MG, UNK
     Route: 048
  4. FISH OIL [Concomitant]
     Dosage: UNK
     Route: 048
  5. VITAMIN B [Concomitant]
     Dosage: UNK
     Route: 048
  6. VITAMIN C                          /00008001/ [Concomitant]
     Dosage: 500 MG, UNK
     Route: 048
  7. VITAMIN D                          /00107901/ [Concomitant]
     Dosage: 1000 UNIT, UNK
     Route: 048
  8. CALCIUM [Concomitant]
     Dosage: 500 MG, UNK
     Route: 048
  9. MULTIVITAMINS, PLAIN [Concomitant]
     Dosage: UNK
     Route: 048

REACTIONS (1)
  - Atypical pneumonia [Unknown]
